FAERS Safety Report 10128632 (Version 2)
Quarter: 2014Q2

REPORT INFORMATION
  Report Type: Spontaneous
  Country: GB (occurrence: GB)
  Receive Date: 20140428
  Receipt Date: 20140428
  Transmission Date: 20141212
  Serious: Yes (Other)
  Sender: FDA-Public Use
  Company Number: PHFR2013GB006230

PATIENT
  Age: 81 Year
  Sex: Male

DRUGS (5)
  1. RIVASTIGMINE [Suspect]
     Indication: DEMENTIA
     Dosage: UNK UKN, UNK
     Route: 048
  2. RIVASTIGMINE [Suspect]
     Dosage: 9.5 MG, PER DAY
     Route: 062
     Dates: start: 20121003, end: 20131030
  3. TAMSULOSIN [Concomitant]
     Dosage: 400 UG, DAILY
     Route: 048
     Dates: start: 20120912
  4. FINASTERIDE [Concomitant]
     Dosage: 5 MG, DAILY
     Dates: start: 20140214
  5. DIAZEPAM [Concomitant]
     Dosage: 6 MG, DAILY
     Dates: start: 20060218

REACTIONS (4)
  - Gastrointestinal disorder [Unknown]
  - Application site dermatitis [Recovered/Resolved]
  - Drug intolerance [Unknown]
  - Product substitution issue [Unknown]
